FAERS Safety Report 9291511 (Version 1)
Quarter: 2013Q2

REPORT INFORMATION
  Report Type: Spontaneous
  Country: US (occurrence: US)
  Receive Date: 20130515
  Receipt Date: 20130515
  Transmission Date: 20140414
  Serious: No
  Sender: FDA-Public Use
  Company Number: US-009507513-1305USA008490

PATIENT
  Sex: Female

DRUGS (2)
  1. SAPHRIS [Suspect]
     Route: 060
  2. RISPERIDONE [Concomitant]

REACTIONS (1)
  - Syncope [Unknown]
